FAERS Safety Report 10258827 (Version 1)
Quarter: 2014Q2

REPORT INFORMATION
  Report Type: Spontaneous
  Country: US (occurrence: US)
  Receive Date: 20140625
  Receipt Date: 20140625
  Transmission Date: 20141212
  Serious: No
  Sender: FDA-Public Use
  Company Number: US-ASTELLAS-2013US008727

PATIENT
  Age: 59 Year
  Sex: Female

DRUGS (5)
  1. VESICARE [Suspect]
     Indication: POLLAKIURIA
     Dosage: 10 MG, IN THE MORNING
     Route: 065
     Dates: end: 2013
  2. VESICARE [Interacting]
     Route: 048
     Dates: start: 201307
  3. LANSOPRAZOLE [Interacting]
     Indication: PRODUCT USED FOR UNKNOWN INDICATION
     Route: 065
     Dates: start: 2013, end: 201307
  4. CLARITHROMYCIN [Interacting]
     Indication: PRODUCT USED FOR UNKNOWN INDICATION
     Route: 065
     Dates: start: 2013, end: 201307
  5. METRONIDAZOLE [Interacting]
     Indication: PRODUCT USED FOR UNKNOWN INDICATION
     Route: 065
     Dates: start: 2013, end: 201307

REACTIONS (5)
  - Drug ineffective [Unknown]
  - Drug interaction [Unknown]
  - Adverse event [Unknown]
  - Nocturia [Unknown]
  - Fatigue [Unknown]
